FAERS Safety Report 11141882 (Version 1)
Quarter: 2015Q2

REPORT INFORMATION
  Report Type: Spontaneous
  Country: US (occurrence: US)
  Receive Date: 20150527
  Receipt Date: 20150527
  Transmission Date: 20150821
  Serious: Yes (Other)
  Sender: FDA-Public Use
  Company Number: US-GLAXOSMITHKLINE-US2015GSK070999

PATIENT
  Age: 30 Year
  Sex: Female

DRUGS (2)
  1. ALLI [Suspect]
     Active Substance: ORLISTAT
     Indication: PRODUCT USED FOR UNKNOWN INDICATION
     Dosage: UNK
  2. BACTRIM [Suspect]
     Active Substance: SULFAMETHOXAZOLE\TRIMETHOPRIM
     Indication: PRODUCT USED FOR UNKNOWN INDICATION
     Dosage: UNK

REACTIONS (8)
  - Liver injury [Unknown]
  - International normalised ratio increased [Unknown]
  - Hepatitis acute [Unknown]
  - Hepatic fibrosis [Unknown]
  - Hepatic necrosis [Unknown]
  - Hepatic steatosis [Unknown]
  - Ascites [Unknown]
  - Splenomegaly [Unknown]
